FAERS Safety Report 15508644 (Version 1)
Quarter: 2018Q4

REPORT INFORMATION
  Report Type: Spontaneous
  Country: AT (occurrence: AT)
  Receive Date: 20181016
  Receipt Date: 20181016
  Transmission Date: 20190205
  Serious: Yes (Other)
  Sender: FDA-Public Use
  Company Number: PHHY2018AT115658

PATIENT
  Age: 197 Month
  Sex: Male

DRUGS (4)
  1. IMATINIB. [Suspect]
     Active Substance: IMATINIB MESYLATE
     Indication: ACUTE MYELOID LEUKAEMIA
     Route: 065
  2. AZACITIDINE. [Suspect]
     Active Substance: AZACITIDINE
     Indication: ACUTE MYELOID LEUKAEMIA
     Route: 065
  3. IMATINIB. [Suspect]
     Active Substance: IMATINIB MESYLATE
     Indication: MYELODYSPLASTIC SYNDROME
  4. AZACITIDINE. [Suspect]
     Active Substance: AZACITIDINE
     Indication: MYELODYSPLASTIC SYNDROME

REACTIONS (2)
  - Enterovirus infection [Recovered/Resolved]
  - Product use in unapproved indication [Unknown]
